FAERS Safety Report 15580081 (Version 2)
Quarter: 2018Q4

REPORT INFORMATION
  Report Type: Spontaneous
  Country: GB (occurrence: GB)
  Receive Date: 20181102
  Receipt Date: 20181116
  Transmission Date: 20190205
  Serious: Yes (Other)
  Sender: FDA-Public Use
  Company Number: GB-SA-2018SA299792

PATIENT
  Age: 70 Year
  Sex: Male

DRUGS (2)
  1. INDAPAMIDE. [Suspect]
     Active Substance: INDAPAMIDE
     Indication: HYPERTENSION
  2. INDAPAMIDE. [Suspect]
     Active Substance: INDAPAMIDE
     Indication: HYPERLIPIDAEMIA
     Dosage: 2.5 MG, QID

REACTIONS (4)
  - Choroidal effusion [Recovered/Resolved]
  - Visual field defect [Recovered/Resolved]
  - Choroidal detachment [Recovered/Resolved]
  - Hyalosis asteroid [Recovered/Resolved]
